FAERS Safety Report 12620076 (Version 1)
Quarter: 2016Q3

REPORT INFORMATION
  Report Type: Spontaneous
  Country: TR (occurrence: TR)
  Receive Date: 20160803
  Receipt Date: 20160803
  Transmission Date: 20161109
  Serious: Yes (Death, Hospitalization, Other)
  Sender: FDA-Public Use
  Company Number: TR-APOTEX-2016AP010124

PATIENT
  Age: 72 Year
  Sex: Male

DRUGS (2)
  1. ASPIRIN                            /00002701/ [Suspect]
     Active Substance: ASPIRIN
     Indication: ANTICOAGULANT THERAPY
     Dosage: UNK, UNKNOWN
     Route: 065
  2. AS-CLODIP FILM TABLET [Suspect]
     Active Substance: CLOPIDOGREL BISULFATE
     Indication: ANTICOAGULANT THERAPY
     Dosage: UNK, UNKNOWN
     Route: 065

REACTIONS (7)
  - Interstitial lung disease [Fatal]
  - Retinopathy hypertensive [Fatal]
  - Fat embolism [Fatal]
  - Respiratory failure [Fatal]
  - Acute myocardial infarction [Fatal]
  - Pneumonia [Fatal]
  - Lung infiltration [Fatal]
